FAERS Safety Report 8578571-3 (Version None)
Quarter: 2012Q3

REPORT INFORMATION
  Report Type: 
  Country: None (occurrence: None)
  Receive Date: 20120731
  Receipt Date: 20120731
  Transmission Date: 20120928
  Serious: Yes (Hospitalization)
  Sender: FDA-Public Use
  Company Number: None

PATIENT
  Sex: Female

DRUGS (1)
  1. BYDUREON [Suspect]
     Indication: DIABETES MELLITUS
     Dosage: INJECT 1 VIAL EVERY WEEK

REACTIONS (2)
  - PRODUCT CONTAMINATION [None]
  - STAPHYLOCOCCAL INFECTION [None]
